FAERS Safety Report 19428978 (Version 1)
Quarter: 2021Q2

REPORT INFORMATION
  Report Type: Spontaneous
  Country: US (occurrence: US)
  Receive Date: 20210617
  Receipt Date: 20210617
  Transmission Date: 20210717
  Serious: Yes (Hospitalization)
  Sender: FDA-Public Use
  Company Number: None

PATIENT
  Sex: Female
  Weight: 116.1 kg

DRUGS (3)
  1. DEXAMETHASONE. [Concomitant]
     Active Substance: DEXAMETHASONE
  2. DARATUMUMAB [Suspect]
     Active Substance: DARATUMUMAB
  3. LENALIDOMIDE [Concomitant]
     Active Substance: LENALIDOMIDE

REACTIONS (4)
  - Vomiting [None]
  - Pyrexia [None]
  - Adrenal insufficiency [None]
  - Nausea [None]

NARRATIVE: CASE EVENT DATE: 20201028
